FAERS Safety Report 19561379 (Version 1)
Quarter: 2021Q3

REPORT INFORMATION
  Report Type: Report from Study
  Country: CA (occurrence: CA)
  Receive Date: 20210716
  Receipt Date: 20210716
  Transmission Date: 20211014
  Serious: Yes (Other)
  Sender: FDA-Public Use
  Company Number: CA-JNJFOC-20210732448

PATIENT
  Age: 44 Year
  Sex: Female

DRUGS (3)
  1. RIVAROXABAN [Suspect]
     Active Substance: RIVAROXABAN
     Indication: ANTICOAGULANT THERAPY
     Route: 048
  2. CLADRIBINE. [Suspect]
     Active Substance: CLADRIBINE
     Indication: MULTIPLE SCLEROSIS
     Dosage: UNK
     Route: 048
  3. CLADRIBINE. [Suspect]
     Active Substance: CLADRIBINE
     Dosage: UNK
     Route: 048

REACTIONS (4)
  - Concussion [Unknown]
  - Glomerular filtration rate decreased [Unknown]
  - Multiple sclerosis [Unknown]
  - Syncope [Unknown]
